FAERS Safety Report 5571794-7 (Version None)
Quarter: 2007Q4

REPORT INFORMATION
  Report Type: 
  Country: None (occurrence: None)
  Receive Date: 20071221
  Receipt Date: 20071221
  Transmission Date: 20080405
  Serious: Yes (Hospitalization)
  Sender: FDA-Public Use
  Company Number: A0700212A

PATIENT
  Age: 41 Year
  Sex: Female

DRUGS (1)
  1. GOODYS EXTRA STRENGTH HEADACHE POWDER [Suspect]
     Indication: HEADACHE
     Dates: end: 20071210

REACTIONS (8)
  - ABDOMINAL PAIN UPPER [None]
  - ASCITES [None]
  - FLATULENCE [None]
  - GASTRIC INFECTION [None]
  - GASTRIC ULCER PERFORATION [None]
  - INTENTIONAL DRUG MISUSE [None]
  - INTENTIONAL OVERDOSE [None]
  - MALAISE [None]
